FAERS Safety Report 13716664 (Version 1)
Quarter: 2017Q3

REPORT INFORMATION
  Report Type: Spontaneous
  Country: ZA (occurrence: ZA)
  Receive Date: 20170705
  Receipt Date: 20170705
  Transmission Date: 20171127
  Serious: No
  Sender: FDA-Public Use
  Company Number: ZA-LUPIN PHARMACEUTICALS INC.-2016-03575

PATIENT
  Sex: Female

DRUGS (7)
  1. MENACAL [Concomitant]
     Indication: MINERAL SUPPLEMENTATION
     Dosage: 1 DF,QD,
     Route: 048
     Dates: start: 20141016
  2. CALCIFEROL [Concomitant]
     Active Substance: ERGOCALCIFEROL
     Indication: VITAMIN SUPPLEMENTATION
     Dosage: 1 DF,AS DIRECTED,
     Route: 048
     Dates: start: 20141016
  3. CONCOR [Concomitant]
     Active Substance: BISOPROLOL FUMARATE
     Indication: CARDIAC DISORDER
     Dosage: 1 DF,QD,
     Route: 048
     Dates: start: 20140117
  4. ASPIRIN CARDIO [Concomitant]
     Active Substance: ASPIRIN
     Indication: ANTICOAGULANT THERAPY
     Dosage: 1 DF,QD,
     Route: 048
     Dates: start: 20140117
  5. PLENISH K [Concomitant]
     Indication: VITAMIN SUPPLEMENTATION
     Dosage: 1 DF,QD,
     Route: 048
     Dates: start: 20140117
  6. SIMVACOR [Suspect]
     Active Substance: SIMVASTATIN
     Indication: BLOOD CHOLESTEROL INCREASED
     Dosage: 1 DF,QD,
     Route: 048
     Dates: start: 20140117
  7. ZARTAN [Concomitant]
     Active Substance: LOSARTAN POTASSIUM
     Indication: BLOOD PRESSURE MEASUREMENT
     Dosage: 1 DF,QD,
     Route: 048
     Dates: start: 20160408

REACTIONS (1)
  - Cough [Not Recovered/Not Resolved]
